FAERS Safety Report 8597646-6 (Version None)
Quarter: 2012Q3

REPORT INFORMATION
  Report Type: 
  Country: None (occurrence: None)
  Receive Date: 20120816
  Receipt Date: 20120810
  Transmission Date: 20120928
  Serious: Yes (Other)
  Sender: FDA-Public Use
  Company Number: CH-PFIZER INC-2012195233

PATIENT
  Age: 74 Year
  Sex: Female

DRUGS (4)
  1. ASPIRIN [Concomitant]
     Dosage: 100 MG PER DAY
     Dates: start: 20090101
  2. GENOTROPIN [Suspect]
     Dosage: 0.4 MG PER DAY
     Dates: start: 20011009
  3. GENOTROPIN [Suspect]
     Dosage: 0.3 MG PER DAY
  4. CITALOPRAM HYDROBROMIDE [Concomitant]
     Dosage: 20 ML, DAILY
     Dates: start: 20110208

REACTIONS (1)
  - PATHOLOGICAL FRACTURE [None]
